FAERS Safety Report 8966011 (Version 1)
Quarter: 2012Q4

REPORT INFORMATION
  Report Type: 
  Country: JP (occurrence: JP)
  Receive Date: 20121214
  Receipt Date: 20121214
  Transmission Date: 20130627
  Serious: Yes (Other)
  Sender: FDA-Public Use
  Company Number: CHPA2012JP024314

PATIENT

DRUGS (1)
  1. NICOTINELL [Suspect]
     Indication: SMOKING CESSATION THERAPY
     Dosage: 52.5 mg, QD
     Route: 062
     Dates: start: 20121119

REACTIONS (1)
  - White blood cell count increased [Recovered/Resolved]
